FAERS Safety Report 9342598 (Version 1)
Quarter: 2013Q2

REPORT INFORMATION
  Report Type: Spontaneous
  Country: US (occurrence: US)
  Receive Date: 20130611
  Receipt Date: 20130611
  Transmission Date: 20140414
  Serious: Yes (Hospitalization)
  Sender: FDA-Public Use
  Company Number: US-BRISTOL-MYERS SQUIBB COMPANY-18994079

PATIENT
  Sex: Male

DRUGS (1)
  1. COUMADIN TABS 2 MG [Suspect]
     Indication: THROMBOSIS
     Dosage: RAISED TO 11MG
     Dates: start: 201212

REACTIONS (3)
  - Pneumonia [Unknown]
  - Pneumothorax [Unknown]
  - Insomnia [Unknown]
